FAERS Safety Report 13296871 (Version 3)
Quarter: 2018Q1

REPORT INFORMATION
  Report Type: Spontaneous
  Country: US (occurrence: US)
  Receive Date: 20170306
  Receipt Date: 20180220
  Transmission Date: 20180508
  Serious: No
  Sender: FDA-Public Use
  Company Number: US-TEVA-732061ACC

PATIENT
  Age: 48 Year
  Sex: Female
  Weight: 104 kg

DRUGS (4)
  1. TAMOXIFEN [Suspect]
     Active Substance: TAMOXIFEN
     Indication: PROPHYLACTIC CHEMOTHERAPY
     Dates: start: 20161220, end: 20170117
  2. LEVOTHYROXINE. [Concomitant]
     Active Substance: LEVOTHYROXINE
     Indication: THYROID DISORDER
  3. LOSARTAN. [Concomitant]
     Active Substance: LOSARTAN
     Indication: HYPERTENSION
  4. AMLODIPINE [Concomitant]
     Active Substance: AMLODIPINE BESYLATE
     Indication: HYPERTENSION

REACTIONS (7)
  - Blood urea nitrogen/creatinine ratio increased [Unknown]
  - Arthralgia [Recovering/Resolving]
  - Insomnia [Recovering/Resolving]
  - Alanine aminotransferase increased [Unknown]
  - Hot flush [Recovering/Resolving]
  - Product substitution issue [Unknown]
  - Skin burning sensation [Recovering/Resolving]

NARRATIVE: CASE EVENT DATE: 20161220
